FAERS Safety Report 13213075 (Version 1)
Quarter: 2017Q1

REPORT INFORMATION
  Report Type: Spontaneous
  Country: IN (occurrence: IN)
  Receive Date: 20170210
  Receipt Date: 20170210
  Transmission Date: 20170428
  Serious: Yes (Hospitalization, Other)
  Sender: FDA-Public Use
  Company Number: IN-TEVA-736458ISR

PATIENT
  Age: 65 Year
  Sex: Female

DRUGS (9)
  1. GLIPIZIDE. [Concomitant]
     Active Substance: GLIPIZIDE
  2. PIPERACILLIN AND TAZOBACTAM [Concomitant]
     Active Substance: PIPERACILLIN SODIUM\TAZOBACTAM SODIUM
  3. RASAGILINE MESILATE TABLET [Suspect]
     Active Substance: RASAGILINE MESYLATE
     Indication: PARKINSONISM
     Route: 065
  4. AMANTADINE [Concomitant]
     Active Substance: AMANTADINE
  5. METFORMIN [Concomitant]
     Active Substance: METFORMIN HYDROCHLORIDE
  6. LINEZOLID. [Interacting]
     Active Substance: LINEZOLID
     Indication: SEPSIS
     Dosage: 1200 MILLIGRAM DAILY;
     Route: 042
  7. TRIHEXYPHENIDYL [Concomitant]
     Active Substance: TRIHEXYPHENIDYL
  8. LEVODOPA/CARBIDOPA [Concomitant]
     Active Substance: CARBIDOPA\LEVODOPA
  9. ROPINIROLE. [Concomitant]
     Active Substance: ROPINIROLE

REACTIONS (2)
  - Drug interaction [Unknown]
  - Serotonin syndrome [Recovered/Resolved]
